FAERS Safety Report 4987549-8 (Version None)
Quarter: 2006Q2

REPORT INFORMATION
  Report Type: 
  Country: None (occurrence: None)
  Receive Date: 20060424
  Receipt Date: 20060405
  Transmission Date: 20061013
  Serious: Yes (Hospitalization)
  Sender: FDA-Public Use
  Company Number: US200602003310

PATIENT
  Age: 55 Year
  Sex: Male
  Weight: 86.2 kg

DRUGS (15)
  1. ZYPREXA [Suspect]
     Dosage: SEE IMAGE
     Dates: start: 20050602, end: 20060201
  2. ZYPREXA [Suspect]
     Dosage: SEE IMAGE
     Dates: start: 20030601
  3. ZYPREXA [Suspect]
     Dosage: SEE IMAGE
     Dates: start: 20030901
  4. ZYPREXA [Suspect]
     Dosage: SEE IMAGE
     Dates: start: 20031001
  5. ZYPREXA [Suspect]
     Dosage: SEE IMAGE
     Dates: start: 20031013
  6. PROZAC [Concomitant]
  7. LEXAPRO /USA/ (ESCITALOPRAM) [Concomitant]
  8. DIAZEPAM [Concomitant]
  9. PAROXETINE [Concomitant]
  10. HALOPERIDOL [Concomitant]
  11. ATIVAN [Concomitant]
  12. EFFEXOR XR [Concomitant]
  13. CELEXA [Concomitant]
  14. PROPRANOLOL [Concomitant]
  15. PROCARDIA [Concomitant]

REACTIONS (14)
  - ATRIOVENTRICULAR BLOCK FIRST DEGREE [None]
  - BENIGN PROSTATIC HYPERPLASIA [None]
  - BIPOLAR I DISORDER [None]
  - BRADYCARDIA [None]
  - DIABETES MELLITUS NON-INSULIN-DEPENDENT [None]
  - DRUG HYPERSENSITIVITY [None]
  - DRUG SCREEN POSITIVE [None]
  - HOMICIDAL IDEATION [None]
  - HYPERLIPIDAEMIA [None]
  - LOSS OF CONSCIOUSNESS [None]
  - PERSONALITY DISORDER [None]
  - PRESCRIBED OVERDOSE [None]
  - PSYCHOTIC DISORDER [None]
  - WEIGHT INCREASED [None]
